FAERS Safety Report 6245178-2 (Version None)
Quarter: 2009Q2

REPORT INFORMATION
  Report Type: 
  Country: None (occurrence: None)
  Receive Date: 20090625
  Receipt Date: 20090515
  Transmission Date: 20091009
  Serious: Yes (Hospitalization)
  Sender: FDA-Public Use
  Company Number: PHHY2009JP24038

PATIENT
  Age: 26 Year
  Sex: Male

DRUGS (7)
  1. VOLTAREN [Suspect]
     Route: 054
  2. VOLTAREN [Suspect]
     Route: 048
  3. FLOMOX [Concomitant]
     Dosage: 300 MG, UNK
     Route: 048
  4. ALLELOCK [Concomitant]
     Dosage: 10 MG, UNK
     Route: 048
  5. TRANSAMIN [Concomitant]
     Dosage: 750 MG, UNK
     Route: 048
  6. PL [Concomitant]
     Dosage: 3 G, UNK
     Route: 048
  7. MUCODYNE [Concomitant]
     Dosage: 1500 MG, UNK
     Route: 048

REACTIONS (3)
  - MALAISE [None]
  - PYREXIA [None]
  - SYSTEMIC LUPUS ERYTHEMATOSUS [None]
